FAERS Safety Report 6418348-8 (Version None)
Quarter: 2009Q4

REPORT INFORMATION
  Report Type: 
  Country: None (occurrence: None)
  Receive Date: 20091028
  Receipt Date: 20091020
  Transmission Date: 20100525
  Serious: Yes (Other)
  Sender: FDA-Public Use
  Company Number: CA-AMGEN-QUU364853

PATIENT
  Sex: Female
  Weight: 79 kg

DRUGS (4)
  1. ENBREL [Suspect]
     Indication: RHEUMATOID ARTHRITIS
     Route: 058
     Dates: start: 20070210
  2. METHOTREXATE [Concomitant]
     Dates: start: 20021201
  3. IBUPROFEN [Concomitant]
     Dates: start: 20010101
  4. NAPROXEN [Concomitant]
     Dates: start: 20070101

REACTIONS (2)
  - DIABETES MELLITUS [None]
  - MIXED CONNECTIVE TISSUE DISEASE [None]
